FAERS Safety Report 23971857 (Version 1)
Quarter: 2024Q2

REPORT INFORMATION
  Report Type: Spontaneous
  Country: CN (occurrence: CN)
  Receive Date: 20240613
  Receipt Date: 20240613
  Transmission Date: 20240716
  Serious: Yes (Other)
  Sender: FDA-Public Use
  Company Number: None

PATIENT
  Age: 8 Year
  Sex: Male
  Weight: 27 kg

DRUGS (5)
  1. CYCLOPHOSPHAMIDE [Suspect]
     Active Substance: CYCLOPHOSPHAMIDE
     Indication: Acute lymphocytic leukaemia
     Dosage: 0.97 G, ONE TIME IN ONE DAY, DILUTED WITH 250 ML OF (4:1) GLUCOSE AND SODIUM CHLORIDE, AS A PART OF
     Route: 041
     Dates: start: 20231031, end: 20231031
  2. DEXTROSE\SODIUM CHLORIDE [Suspect]
     Active Substance: DEXTROSE\SODIUM CHLORIDE
     Indication: Medication dilution
     Dosage: 250 ML (4:1), ONE TIME IN ONE DAY, USED TO DILUTE 0.97 G OF CYCLOPHOSPHAMIDE, AS A PART OF CAM REGIM
     Route: 041
     Dates: start: 20231031, end: 20231031
  3. DEXTROSE\SODIUM CHLORIDE [Suspect]
     Active Substance: DEXTROSE\SODIUM CHLORIDE
     Dosage: 100 ML (4:1), Q12H, USED TO DILUTE 0.97 G OF CYTARABINE, AS A PART OF CAM REGIMEN
     Route: 041
     Dates: start: 20231031, end: 20231103
  4. CYTARABINE [Suspect]
     Active Substance: CYTARABINE
     Indication: Acute lymphocytic leukaemia
     Dosage: 0.97 G, Q12H, DILUTED WITH 100 ML OF (4:1) GLUCOSE AND SODIUM CHLORIDE, AS A PART OF CAM REGIMEN
     Route: 041
     Dates: start: 20231031, end: 20231103
  5. MERCAPTOPURINE [Suspect]
     Active Substance: MERCAPTOPURINE
     Indication: Acute lymphocytic leukaemia
     Dosage: 48 MG, ONE TIME IN ONE DAY (QN), AS A PART OF CAM REGIMEN
     Route: 048
     Dates: start: 20231031, end: 20231106

REACTIONS (1)
  - Myelosuppression [Recovering/Resolving]

NARRATIVE: CASE EVENT DATE: 20231109
